FAERS Safety Report 12405332 (Version 2)
Quarter: 2016Q2

REPORT INFORMATION
  Report Type: Spontaneous
  Country: AU (occurrence: AU)
  Receive Date: 20160525
  Receipt Date: 20160527
  Transmission Date: 20160815
  Serious: Yes (Disabling)
  Sender: FDA-Public Use
  Company Number: AU-009507513-1605AUS011692

PATIENT
  Age: 56 Year
  Sex: Female
  Weight: 113 kg

DRUGS (2)
  1. VYTORIN [Suspect]
     Active Substance: EZETIMIBE\SIMVASTATIN
     Dosage: STRENGTH: 10/10, 1 TABLET DAILY
     Dates: start: 20160203, end: 20160212
  2. KARVEA [Concomitant]
     Active Substance: IRBESARTAN

REACTIONS (1)
  - Cardiac flutter [Recovering/Resolving]

NARRATIVE: CASE EVENT DATE: 20160204
